FAERS Safety Report 21341240 (Version 2)
Quarter: 2023Q4

REPORT INFORMATION
  Report Type: Spontaneous
  Country: CA (occurrence: CA)
  Receive Date: 20220916
  Receipt Date: 20231229
  Transmission Date: 20240110
  Serious: Yes (Hospitalization, Other)
  Sender: FDA-Public Use
  Company Number: CA-ALKEM LABORATORIES LIMITED-CN-ALKEM-2022-09672

PATIENT
  Age: 47 Year
  Sex: Female

DRUGS (1)
  1. COLCHICINE [Suspect]
     Active Substance: COLCHICINE
     Indication: Product used for unknown indication
     Dosage: 90 MILLIGRAM
     Route: 048

REACTIONS (14)
  - Acute kidney injury [Recovering/Resolving]
  - Acute respiratory failure [Recovering/Resolving]
  - Myocardial injury [Recovering/Resolving]
  - Suicide attempt [Recovering/Resolving]
  - Acidosis [Recovering/Resolving]
  - Coagulopathy [Recovering/Resolving]
  - Liver injury [Recovering/Resolving]
  - Leukopenia [Recovering/Resolving]
  - Rhabdomyolysis [Recovering/Resolving]
  - Thrombocytopenia [Recovering/Resolving]
  - Anaemia [Recovering/Resolving]
  - Multiple organ dysfunction syndrome [Unknown]
  - Abdominal pain [Unknown]
  - Overdose [Unknown]
